FAERS Safety Report 5491350-9 (Version None)
Quarter: 2007Q4

REPORT INFORMATION
  Report Type: 
  Country: None (occurrence: None)
  Receive Date: 20071017
  Receipt Date: 20071003
  Transmission Date: 20080405
  Serious: Yes (Death)
  Sender: FDA-Public Use
  Company Number: 013188

PATIENT
  Age: 35 Year
  Sex: Male
  Weight: 108 kg

DRUGS (38)
  1. PRIALT [Suspect]
     Indication: CANCER PAIN
     Dosage: SEE IMAGE
     Route: 037
     Dates: start: 20070510, end: 20070513
  2. PRIALT [Suspect]
     Indication: NEURALGIA
     Dosage: SEE IMAGE
     Route: 037
     Dates: start: 20070510, end: 20070513
  3. PRIALT [Suspect]
     Indication: PAIN
     Dosage: SEE IMAGE
     Route: 037
     Dates: start: 20070510, end: 20070513
  4. PRIALT [Suspect]
     Indication: TUMOUR PAIN
     Dosage: SEE IMAGE
     Route: 037
     Dates: start: 20070510, end: 20070513
  5. PRIALT [Suspect]
     Indication: CANCER PAIN
     Dosage: SEE IMAGE
     Route: 037
     Dates: start: 20070514, end: 20070515
  6. PRIALT [Suspect]
     Indication: NEURALGIA
     Dosage: SEE IMAGE
     Route: 037
     Dates: start: 20070514, end: 20070515
  7. PRIALT [Suspect]
     Indication: PAIN
     Dosage: SEE IMAGE
     Route: 037
     Dates: start: 20070514, end: 20070515
  8. PRIALT [Suspect]
     Indication: TUMOUR PAIN
     Dosage: SEE IMAGE
     Route: 037
     Dates: start: 20070514, end: 20070515
  9. PRIALT [Suspect]
     Indication: CANCER PAIN
     Dosage: SEE IMAGE
     Route: 037
     Dates: start: 20070516, end: 20070517
  10. PRIALT [Suspect]
     Indication: NEURALGIA
     Dosage: SEE IMAGE
     Route: 037
     Dates: start: 20070516, end: 20070517
  11. PRIALT [Suspect]
     Indication: PAIN
     Dosage: SEE IMAGE
     Route: 037
     Dates: start: 20070516, end: 20070517
  12. PRIALT [Suspect]
     Indication: TUMOUR PAIN
     Dosage: SEE IMAGE
     Route: 037
     Dates: start: 20070516, end: 20070517
  13. PRIALT [Suspect]
     Indication: CANCER PAIN
     Dosage: SEE IMAGE
     Route: 037
     Dates: start: 20070518, end: 20070520
  14. PRIALT [Suspect]
     Indication: NEURALGIA
     Dosage: SEE IMAGE
     Route: 037
     Dates: start: 20070518, end: 20070520
  15. PRIALT [Suspect]
     Indication: PAIN
     Dosage: SEE IMAGE
     Route: 037
     Dates: start: 20070518, end: 20070520
  16. PRIALT [Suspect]
     Indication: TUMOUR PAIN
     Dosage: SEE IMAGE
     Route: 037
     Dates: start: 20070518, end: 20070520
  17. PRIALT [Suspect]
     Indication: CANCER PAIN
     Dosage: SEE IMAGE
     Route: 037
     Dates: start: 20070508, end: 20070529
  18. PRIALT [Suspect]
     Indication: NEURALGIA
     Dosage: SEE IMAGE
     Route: 037
     Dates: start: 20070508, end: 20070529
  19. PRIALT [Suspect]
     Indication: PAIN
     Dosage: SEE IMAGE
     Route: 037
     Dates: start: 20070508, end: 20070529
  20. PRIALT [Suspect]
     Indication: TUMOUR PAIN
     Dosage: SEE IMAGE
     Route: 037
     Dates: start: 20070508, end: 20070529
  21. PRIALT [Suspect]
     Indication: CANCER PAIN
     Dosage: SEE IMAGE
     Route: 037
     Dates: start: 20070521, end: 20070610
  22. PRIALT [Suspect]
     Indication: NEURALGIA
     Dosage: SEE IMAGE
     Route: 037
     Dates: start: 20070521, end: 20070610
  23. PRIALT [Suspect]
     Indication: PAIN
     Dosage: SEE IMAGE
     Route: 037
     Dates: start: 20070521, end: 20070610
  24. PRIALT [Suspect]
     Indication: TUMOUR PAIN
     Dosage: SEE IMAGE
     Route: 037
     Dates: start: 20070521, end: 20070610
  25. PRIALT [Suspect]
     Indication: CANCER PAIN
     Dosage: SEE IMAGE
     Route: 037
     Dates: start: 20070611, end: 20070611
  26. PRIALT [Suspect]
     Indication: NEURALGIA
     Dosage: SEE IMAGE
     Route: 037
     Dates: start: 20070611, end: 20070611
  27. PRIALT [Suspect]
     Indication: PAIN
     Dosage: SEE IMAGE
     Route: 037
     Dates: start: 20070611, end: 20070611
  28. PRIALT [Suspect]
     Indication: TUMOUR PAIN
     Dosage: SEE IMAGE
     Route: 037
     Dates: start: 20070611, end: 20070611
  29. PRIALT [Suspect]
     Indication: CANCER PAIN
     Dosage: SEE IMAGE
     Route: 037
     Dates: start: 20070612, end: 20070726
  30. PRIALT [Suspect]
     Indication: NEURALGIA
     Dosage: SEE IMAGE
     Route: 037
     Dates: start: 20070612, end: 20070726
  31. PRIALT [Suspect]
     Indication: PAIN
     Dosage: SEE IMAGE
     Route: 037
     Dates: start: 20070612, end: 20070726
  32. PRIALT [Suspect]
     Indication: TUMOUR PAIN
     Dosage: SEE IMAGE
     Route: 037
     Dates: start: 20070612, end: 20070726
  33. DURAGESIC-100 [Concomitant]
  34. MORPHINE [Concomitant]
  35. DIPYRONE TAB [Concomitant]
  36. CARBAMAZEPINE [Concomitant]
  37. GABAPENTIN [Concomitant]
  38. ALL OTHER THERAPEUTIC PRODUCTS [Concomitant]

REACTIONS (1)
  - RESPIRATORY FAILURE [None]
